FAERS Safety Report 8914009 (Version 1)
Quarter: 2012Q4

REPORT INFORMATION
  Report Type: Spontaneous
  Country: US (occurrence: None)
  Receive Date: 20121114
  Receipt Date: 20121114
  Transmission Date: 20130627
  Serious: Yes (Hospitalization)
  Sender: FDA-Public Use
  Company Number: 1476939

PATIENT
  Sex: Male

DRUGS (2)
  1. IRINOTECAN IV [Suspect]
     Indication: DRUG USE FOR UNKNOWN INDICATION
     Dates: start: 20121030
  2. OXALIPLATIN [Suspect]
     Indication: DRUG USE FOR UNKNOWN INDICATION
     Dates: start: 20121030

REACTIONS (2)
  - Swollen tongue [None]
  - Dysarthria [None]
